FAERS Safety Report 23565525 (Version 1)
Quarter: 2024Q1

REPORT INFORMATION
  Report Type: Spontaneous
  Country: SK (occurrence: SK)
  Receive Date: 20240226
  Receipt Date: 20240226
  Transmission Date: 20240409
  Serious: Yes (Other)
  Sender: FDA-Public Use
  Company Number: SK-TEVA-VS-3137404

PATIENT
  Sex: Male

DRUGS (3)
  1. QUETIAPINE [Suspect]
     Active Substance: QUETIAPINE
     Indication: Schizophrenia
     Dosage: IMPOSSIBLE TO ENTER DATES, DEPOT QUETIAPINE NOT MARKETED IN SLOVAKIAUNK
     Route: 065
  2. RISPERIDONE [Suspect]
     Active Substance: RISPERIDONE
     Indication: Schizophrenia
     Dosage: HE DISCONTINUED THE MEDICATION SHORTLY AFTER RELEASE FROM HOSPITAL , HIGHER DOSEUNK
     Route: 065
     Dates: start: 2009
  3. PALIPERIDONE [Concomitant]
     Active Substance: PALIPERIDONE
     Indication: Schizophrenia
     Dosage: PROLONGED-RELEASE DEPOTUNK
     Route: 065

REACTIONS (2)
  - Musculoskeletal stiffness [Recovered/Resolved]
  - Weight increased [Unknown]
